FAERS Safety Report 12532649 (Version 1)
Quarter: 2016Q3

REPORT INFORMATION
  Report Type: Spontaneous
  Country: US (occurrence: US)
  Receive Date: 20160706
  Receipt Date: 20160706
  Transmission Date: 20161109
  Serious: No
  Sender: FDA-Public Use
  Company Number: US-PURDUE-USA-2015-0125304

PATIENT
  Sex: Female

DRUGS (2)
  1. BUTRANS [Suspect]
     Active Substance: BUPRENORPHINE
     Dosage: 10 MCG/HR, WEEKLY
     Route: 062
     Dates: start: 201503, end: 201505
  2. BUTRANS [Suspect]
     Active Substance: BUPRENORPHINE
     Indication: PAIN
     Dosage: 15 MCG/HR, WEEKLY
     Route: 062
     Dates: start: 201505

REACTIONS (8)
  - Application site burn [Unknown]
  - Wrong technique in product usage process [Unknown]
  - Application site rash [Recovered/Resolved]
  - Application site erythema [Unknown]
  - Product adhesion issue [Unknown]
  - Application site discharge [Unknown]
  - Drug administered at inappropriate site [Unknown]
  - Application site pain [Unknown]

NARRATIVE: CASE EVENT DATE: 201503
